FAERS Safety Report 8234538-6 (Version None)
Quarter: 2012Q1

REPORT INFORMATION
  Report Type: 
  Country: None (occurrence: None)
  Receive Date: 20120326
  Receipt Date: 20120314
  Transmission Date: 20120608
  Serious: Yes (Hospitalization)
  Sender: FDA-Public Use
  Company Number: JP-ROCHE-750616

PATIENT
  Sex: Female
  Weight: 47 kg

DRUGS (14)
  1. PREDNISOLONE [Suspect]
     Indication: RHEUMATOID ARTHRITIS
     Route: 048
  2. MUCOSTA [Concomitant]
     Route: 048
  3. FLUNITRAZEPAM [Concomitant]
     Route: 048
  4. FERROUS CITRATE [Concomitant]
  5. AMLODIPINE BESYLATE [Concomitant]
     Route: 048
  6. METHOTREXATE [Suspect]
     Indication: RHEUMATOID ARTHRITIS
     Route: 048
  7. RABEPRAZOLE SODIUM [Concomitant]
  8. LIPITOR [Concomitant]
     Route: 048
  9. ONEALFA [Concomitant]
     Route: 048
  10. ACTEMRA [Suspect]
     Indication: RHEUMATOID ARTHRITIS
     Dosage: DOSAGE IS UNCERTAIN
     Route: 041
     Dates: start: 20091211, end: 20101015
  11. LOXOPROFEN [Concomitant]
     Route: 048
  12. OLMESARTAN MEDOXOMIL [Concomitant]
     Route: 048
  13. MAGMITT [Concomitant]
     Route: 048
  14. LEUCOVORIN CALCIUM [Concomitant]

REACTIONS (2)
  - ARTHRITIS INFECTIVE [None]
  - WOUND DECOMPOSITION [None]
